FAERS Safety Report 18792689 (Version 1)
Quarter: 2021Q1

REPORT INFORMATION
  Report Type: Other
  Country: CA (occurrence: CA)
  Receive Date: 20210127
  Receipt Date: 20210127
  Transmission Date: 20210419
  Serious: Yes (Other)
  Sender: FDA-Public Use
  Company Number: CA-CELLTRION INC.-2021CA000740

PATIENT

DRUGS (10)
  1. BUPROPION. [Concomitant]
     Active Substance: BUPROPION
  2. RABEPRAZOLE [Concomitant]
     Active Substance: RABEPRAZOLE
  3. PREDNISONE. [Concomitant]
     Active Substance: PREDNISONE
  4. METHYLPREDNISOLONE. [Concomitant]
     Active Substance: METHYLPREDNISOLONE
     Indication: PREMEDICATION
     Dosage: 100 MILLIGRAM
     Route: 042
  5. RISEDRONATE [Concomitant]
     Active Substance: RISEDRONATE SODIUM
  6. RITUXIMAB (UNKNOWN) [Suspect]
     Active Substance: RITUXIMAB
     Indication: RHEUMATOID ARTHRITIS
     Dosage: 1000 MILLIGRAM, 1 EVERY 15 DAYS
     Route: 042
  7. DIPHENHYDRAMINE. [Concomitant]
     Active Substance: DIPHENHYDRAMINE
     Indication: PREMEDICATION
     Dosage: 50 MILLIGRAM
     Route: 048
  8. ACETAMINOPHEN. [Concomitant]
     Active Substance: ACETAMINOPHEN
     Indication: PREMEDICATION
     Dosage: 650 MILLIGRAM
     Route: 048
  9. METHOTREXATE. [Concomitant]
     Active Substance: METHOTREXATE
     Route: 058
  10. TRAMADOL. [Concomitant]
     Active Substance: TRAMADOL

REACTIONS (5)
  - Arthropathy [Unknown]
  - Tooth disorder [Unknown]
  - Off label use [Unknown]
  - Joint swelling [Unknown]
  - Morning sickness [Unknown]
